FAERS Safety Report 10107338 (Version 3)
Quarter: 2015Q2

REPORT INFORMATION
  Report Type: Other
  Country: US (occurrence: US)
  Receive Date: 20140424
  Receipt Date: 20150605
  Transmission Date: 20150821
  Serious: Yes (Hospitalization, Other)
  Sender: FDA-Public Use
  Company Number: US-GSKPPD-2014GSK002299

PATIENT
  Age: 65 Year
  Sex: Female

DRUGS (7)
  1. AVANDIA [Suspect]
     Active Substance: ROSIGLITAZONE MALEATE
     Indication: DIABETES MELLITUS
     Dosage: AVANDIA WAS NOT LISTED AMONG THE PATIENTS RECORDS REVIEWED.
     Route: 048
  2. PLAVIX [Concomitant]
     Active Substance: CLOPIDOGREL BISULFATE
  3. COZAAR [Concomitant]
     Active Substance: LOSARTAN POTASSIUM
  4. LASIX [Concomitant]
     Active Substance: FUROSEMIDE
  5. ASPIRIN. [Concomitant]
     Active Substance: ASPIRIN
  6. ALDACTONE [Concomitant]
     Active Substance: SPIRONOLACTONE
  7. IMDUR [Concomitant]
     Active Substance: ISOSORBIDE MONONITRATE

REACTIONS (2)
  - Myocardial infarction [Unknown]
  - Acute coronary syndrome [Recovered/Resolved]

NARRATIVE: CASE EVENT DATE: 20070830
